FAERS Safety Report 5037068-8 (Version None)
Quarter: 2006Q2

REPORT INFORMATION
  Report Type: 
  Country: None (occurrence: None)
  Receive Date: 20060622
  Receipt Date: 20060612
  Transmission Date: 20061013
  Serious: Yes (Other)
  Sender: FDA-Public Use
  Company Number: 2006074263

PATIENT
  Age: 46 Year
  Sex: Male

DRUGS (1)
  1. DEXTROMETHORPHAN HYDROBROMIDE [Suspect]
     Indication: EUPHORIC MOOD
     Dosage: OVER 32 FLUID OUNCES DAILY, ORAL
     Route: 048

REACTIONS (9)
  - DISSOCIATION [None]
  - DRUG DEPENDENCE [None]
  - DRUG SCREEN POSITIVE [None]
  - EUPHORIC MOOD [None]
  - INCORRECT DOSE ADMINISTERED [None]
  - INTENTIONAL DRUG MISUSE [None]
  - IRRITABILITY [None]
  - POISONING [None]
  - PSYCHOMOTOR HYPERACTIVITY [None]
